FAERS Safety Report 25548295 (Version 1)
Quarter: 2025Q3

REPORT INFORMATION
  Report Type: Spontaneous
  Country: EU (occurrence: EU)
  Receive Date: 20250714
  Receipt Date: 20250714
  Transmission Date: 20251020
  Serious: Yes (Hospitalization)
  Sender: MYLAN
  Company Number: EU-MYLANLABS-2025M1056434

PATIENT
  Age: 68 Year
  Sex: Male

DRUGS (32)
  1. ABIRATERONE [Suspect]
     Active Substance: ABIRATERONE
     Indication: Prostate cancer
     Dosage: 500 MILLIGRAM, QD (ON MORNING)
     Dates: start: 2018
  2. ABIRATERONE [Suspect]
     Active Substance: ABIRATERONE
     Dosage: 500 MILLIGRAM, QD (ON MORNING)
     Route: 065
     Dates: start: 2018
  3. ABIRATERONE [Suspect]
     Active Substance: ABIRATERONE
     Dosage: 500 MILLIGRAM, QD (ON MORNING)
     Route: 065
     Dates: start: 2018
  4. ABIRATERONE [Suspect]
     Active Substance: ABIRATERONE
     Dosage: 500 MILLIGRAM, QD (ON MORNING)
     Dates: start: 2018
  5. PREDNISONE [Suspect]
     Active Substance: PREDNISONE
     Indication: Acquired apparent mineralocorticoid excess
     Dosage: 5 MILLIGRAM, QD (ON MORNING)
     Dates: start: 2018
  6. PREDNISONE [Suspect]
     Active Substance: PREDNISONE
     Dosage: 5 MILLIGRAM, QD (ON MORNING)
     Route: 065
     Dates: start: 2018
  7. PREDNISONE [Suspect]
     Active Substance: PREDNISONE
     Dosage: 5 MILLIGRAM, QD (ON MORNING)
     Route: 065
     Dates: start: 2018
  8. PREDNISONE [Suspect]
     Active Substance: PREDNISONE
     Dosage: 5 MILLIGRAM, QD (ON MORNING)
     Dates: start: 2018
  9. POTASSIUM [Suspect]
     Active Substance: POTASSIUM
     Indication: Hypokalaemia
  10. POTASSIUM [Suspect]
     Active Substance: POTASSIUM
     Route: 048
  11. POTASSIUM [Suspect]
     Active Substance: POTASSIUM
     Route: 048
  12. POTASSIUM [Suspect]
     Active Substance: POTASSIUM
  13. POTASSIUM [Suspect]
     Active Substance: POTASSIUM
     Indication: Hypokalaemia
  14. POTASSIUM [Suspect]
     Active Substance: POTASSIUM
     Route: 065
  15. POTASSIUM [Suspect]
     Active Substance: POTASSIUM
     Route: 065
  16. POTASSIUM [Suspect]
     Active Substance: POTASSIUM
  17. METFORMIN [Concomitant]
     Active Substance: METFORMIN HYDROCHLORIDE
     Indication: Type 2 diabetes mellitus
     Dosage: 1000 MILLIGRAM, QD
  18. METFORMIN [Concomitant]
     Active Substance: METFORMIN HYDROCHLORIDE
     Dosage: 1000 MILLIGRAM, QD
  19. METFORMIN [Concomitant]
     Active Substance: METFORMIN HYDROCHLORIDE
     Dosage: 1000 MILLIGRAM, QD
     Route: 065
  20. METFORMIN [Concomitant]
     Active Substance: METFORMIN HYDROCHLORIDE
     Dosage: 1000 MILLIGRAM, QD
     Route: 065
  21. METFORMIN [Concomitant]
     Active Substance: METFORMIN HYDROCHLORIDE
     Dosage: 2000 MILLIGRAM, QD
  22. METFORMIN [Concomitant]
     Active Substance: METFORMIN HYDROCHLORIDE
     Dosage: 2000 MILLIGRAM, QD
  23. METFORMIN [Concomitant]
     Active Substance: METFORMIN HYDROCHLORIDE
     Dosage: 2000 MILLIGRAM, QD
     Route: 065
  24. METFORMIN [Concomitant]
     Active Substance: METFORMIN HYDROCHLORIDE
     Dosage: 2000 MILLIGRAM, QD
     Route: 065
  25. DOXAZOSIN [Concomitant]
     Active Substance: DOXAZOSIN MESYLATE
     Indication: Hypertension
     Dosage: 2 MILLIGRAM, QD
  26. DOXAZOSIN [Concomitant]
     Active Substance: DOXAZOSIN MESYLATE
     Dosage: 2 MILLIGRAM, QD
     Route: 065
  27. DOXAZOSIN [Concomitant]
     Active Substance: DOXAZOSIN MESYLATE
     Dosage: 2 MILLIGRAM, QD
     Route: 065
  28. DOXAZOSIN [Concomitant]
     Active Substance: DOXAZOSIN MESYLATE
     Dosage: 2 MILLIGRAM, QD
  29. LIRAGLUTIDE [Concomitant]
     Active Substance: LIRAGLUTIDE
     Indication: Type 2 diabetes mellitus
     Dosage: 1.8 MILLIGRAM, QD
  30. LIRAGLUTIDE [Concomitant]
     Active Substance: LIRAGLUTIDE
     Dosage: 1.8 MILLIGRAM, QD
     Route: 065
  31. LIRAGLUTIDE [Concomitant]
     Active Substance: LIRAGLUTIDE
     Dosage: 1.8 MILLIGRAM, QD
     Route: 065
  32. LIRAGLUTIDE [Concomitant]
     Active Substance: LIRAGLUTIDE
     Dosage: 1.8 MILLIGRAM, QD

REACTIONS (4)
  - Acquired apparent mineralocorticoid excess [Recovered/Resolved]
  - Hypokalaemia [Recovered/Resolved]
  - Metabolic alkalosis [Unknown]
  - Drug ineffective [Unknown]
